FAERS Safety Report 17449995 (Version 1)
Quarter: 2020Q1

REPORT INFORMATION
  Report Type: Spontaneous
  Country: US (occurrence: US)
  Receive Date: 20200207
  Receipt Date: 20200207
  Transmission Date: 20200409
  Serious: No
  Sender: FDA-Public Use
  Company Number: None

PATIENT
  Age: 85 Year
  Sex: Female
  Weight: 72.57 kg

DRUGS (2)
  1. RECLAST [Suspect]
     Active Substance: ZOLEDRONIC ACID
     Indication: OSTEOARTHRITIS
     Dosage: ?          QUANTITY:1;OTHER FREQUENCY:ONCE PER YEAR;OTHER ROUTE:INJECTION?
     Dates: end: 20190801
  2. RECLAST [Suspect]
     Active Substance: ZOLEDRONIC ACID
     Indication: PELVIC FRACTURE
     Dosage: ?          QUANTITY:1;OTHER FREQUENCY:ONCE PER YEAR;OTHER ROUTE:INJECTION?
     Dates: end: 20190801

REACTIONS (1)
  - Mouth swelling [None]

NARRATIVE: CASE EVENT DATE: 20181218
